FAERS Safety Report 12927085 (Version 1)
Quarter: 2016Q4

REPORT INFORMATION
  Report Type: Spontaneous
  Country: CA (occurrence: US)
  Receive Date: 20161109
  Receipt Date: 20161109
  Transmission Date: 20170207
  Serious: Yes (Hospitalization)
  Sender: FDA-Public Use
  Company Number: None

PATIENT
  Age: 79 Year
  Sex: Male
  Weight: 69.9 kg

DRUGS (1)
  1. CISPLATIN. [Suspect]
     Active Substance: CISPLATIN
     Dates: end: 20161019

REACTIONS (7)
  - Mucosal inflammation [None]
  - Pyrexia [None]
  - Platelet count decreased [None]
  - Neutrophil count decreased [None]
  - Hyponatraemia [None]
  - Haemoglobin decreased [None]
  - Hypovolaemia [None]

NARRATIVE: CASE EVENT DATE: 20161023
